FAERS Safety Report 7090219-6 (Version None)
Quarter: 2010Q4

REPORT INFORMATION
  Report Type: 
  Country: None (occurrence: None)
  Receive Date: 20101105
  Receipt Date: 20101105
  Transmission Date: 20110411
  Serious: Yes (Hospitalization)
  Sender: FDA-Public Use
  Company Number: None

PATIENT
  Age: 70 Year
  Sex: Female
  Weight: 92.3 kg

DRUGS (10)
  1. SIMVASTATIN [Suspect]
     Indication: CEREBROVASCULAR ACCIDENT
     Dosage: 80MG DAILY BY MOUTH
     Route: 048
     Dates: start: 20100913, end: 20101004
  2. SIMVASTATIN [Suspect]
     Indication: DYSLIPIDAEMIA
     Dosage: 80MG DAILY BY MOUTH
     Route: 048
     Dates: start: 20100913, end: 20101004
  3. DETROL LA [Concomitant]
  4. PLAVIX [Concomitant]
  5. ETODOLAC [Concomitant]
  6. LEVOTHROID [Concomitant]
  7. OMEPRAZOLE [Concomitant]
  8. LISINOPRIL [Concomitant]
  9. CALTRATE PLUS D [Concomitant]
  10. PRIMROSE OIL [Concomitant]

REACTIONS (1)
  - RHABDOMYOLYSIS [None]
